FAERS Safety Report 4987670-4 (Version None)
Quarter: 2006Q2

REPORT INFORMATION
  Report Type: 
  Country: None (occurrence: None)
  Receive Date: 20060428
  Receipt Date: 20060428
  Transmission Date: 20061013
  Serious: Yes (Other)
  Sender: FDA-Public Use
  Company Number: None

PATIENT
  Age: 43 Year
  Sex: Female
  Weight: 56.246 kg

DRUGS (1)
  1. TRI-NESSA TABLETS 28'S   WATSON [Suspect]
     Dosage: 1 PILL DAILY
     Dates: start: 20060423, end: 20060426

REACTIONS (7)
  - DRUG HYPERSENSITIVITY [None]
  - EYE IRRITATION [None]
  - EYE SWELLING [None]
  - LACRIMATION INCREASED [None]
  - PHARMACEUTICAL PRODUCT COMPLAINT [None]
  - SKIN IRRITATION [None]
  - VISUAL ACUITY REDUCED [None]
